FAERS Safety Report 4772892-8 (Version None)
Quarter: 2005Q3

REPORT INFORMATION
  Report Type: 
  Country: None (occurrence: None)
  Receive Date: 20050915
  Receipt Date: 20050915
  Transmission Date: 20060218
  Serious: Yes (Life-Threatening, Hospitalization)
  Sender: FDA-Public Use
  Company Number: None

PATIENT
  Age: 45 Year
  Sex: Female
  Weight: 134.2647 kg

DRUGS (2)
  1. FENTANYL [Suspect]
     Dates: start: 20050823
  2. FENTANYL [Suspect]
     Dates: start: 20050824

REACTIONS (9)
  - CYANOSIS [None]
  - DEPRESSED LEVEL OF CONSCIOUSNESS [None]
  - DRUG SCREEN POSITIVE [None]
  - INCORRECT DOSE ADMINISTERED [None]
  - MENTAL DISORDER [None]
  - OVERDOSE [None]
  - PHARMACEUTICAL PRODUCT COMPLAINT [None]
  - SNORING [None]
  - SUICIDE ATTEMPT [None]
